FAERS Safety Report 8035951-2 (Version None)
Quarter: 2012Q1

REPORT INFORMATION
  Report Type: 
  Country: None (occurrence: None)
  Receive Date: 20120106
  Receipt Date: 20111227
  Transmission Date: 20120608
  Serious: Yes (Life-Threatening, Hospitalization)
  Sender: FDA-Public Use
  Company Number: 2011P1015326

PATIENT
  Age: 58 Year
  Sex: Male
  Weight: 130 kg

DRUGS (5)
  1. AMOXICILLIN [Suspect]
     Indication: OROPHARYNGEAL PAIN
     Dosage: 1 G;X1, 1 G;X1
  2. AMOXICILLIN [Suspect]
     Indication: TOOTHACHE
     Dosage: 1 G;X1, 1 G;X1
  3. ZERINOL [Concomitant]
  4. CANDESARTAN/HYDROCHLOROTHIAZIDE [Concomitant]
  5. ROSIGLITAZONE MALEATE AND METFORMIN HCL [Concomitant]

REACTIONS (16)
  - URTICARIA [None]
  - FEELING HOT [None]
  - ABDOMINAL PAIN UPPER [None]
  - ASPIRATION [None]
  - TACHYCARDIA [None]
  - RENAL FAILURE ACUTE [None]
  - MYOCARDIAL INFARCTION [None]
  - ANAPHYLACTIC REACTION [None]
  - NERVOUS SYSTEM DISORDER [None]
  - ASTHENIA [None]
  - CORONARY ARTERY OCCLUSION [None]
  - VENTRICULAR FIBRILLATION [None]
  - HYPOTENSION [None]
  - ANGIOEDEMA [None]
  - RESPIRATORY FAILURE [None]
  - LEFT VENTRICULAR HYPERTROPHY [None]
